FAERS Safety Report 6107782-1 (Version None)
Quarter: 2009Q1

REPORT INFORMATION
  Report Type: 
  Country: None (occurrence: None)
  Receive Date: 20090309
  Receipt Date: 20090304
  Transmission Date: 20090719
  Serious: Yes (Other)
  Sender: FDA-Public Use
  Company Number: B0559472A

PATIENT
  Age: 5 Year
  Sex: Male
  Weight: 19 kg

DRUGS (5)
  1. RELENZA [Suspect]
     Indication: INFLUENZA
     Dosage: 10MG TWICE PER DAY
     Route: 055
     Dates: start: 20090220, end: 20090221
  2. CEFZON [Concomitant]
     Route: 048
  3. BIOFERMIN [Concomitant]
     Route: 048
  4. MUCODYNE [Concomitant]
     Route: 048
  5. CALONAL [Concomitant]
     Route: 048

REACTIONS (6)
  - AGITATION [None]
  - DIZZINESS [None]
  - FEAR [None]
  - HALLUCINATION [None]
  - NIGHTMARE [None]
  - SLEEP DISORDER [None]
